FAERS Safety Report 4921175-1 (Version None)
Quarter: 2006Q1

REPORT INFORMATION
  Report Type: 
  Country: None (occurrence: None)
  Receive Date: 20060217
  Receipt Date: 20060202
  Transmission Date: 20060701
  Serious: Yes (Other)
  Sender: FDA-Public Use
  Company Number: 8014882

PATIENT
  Sex: Male

DRUGS (2)
  1. KEPPRA [Suspect]
  2. CYTOSTATICS [Concomitant]

REACTIONS (1)
  - LEUKOPENIA [None]
